FAERS Safety Report 15229202 (Version 1)
Quarter: 2018Q3

REPORT INFORMATION
  Report Type: Spontaneous
  Country: DZ (occurrence: DZ)
  Receive Date: 20180801
  Receipt Date: 20180801
  Transmission Date: 20181010
  Serious: Yes (Death, Other)
  Sender: FDA-Public Use
  Company Number: DZ-BIOMARINAP-DZ-2018-119210

PATIENT
  Age: 11 Year
  Sex: Male
  Weight: 25 kg

DRUGS (1)
  1. ALDURAZYME [Suspect]
     Active Substance: LARONIDASE
     Indication: MUCOPOLYSACCHARIDOSIS I
     Dosage: 100 ?G/KG, QW
     Route: 041
     Dates: start: 2015, end: 201804

REACTIONS (7)
  - Disease complication [Fatal]
  - Pancytopenia [Unknown]
  - Bone marrow myelogram abnormal [Unknown]
  - Anaemia [Unknown]
  - Haemorrhage [Unknown]
  - Enzyme activity increased [Unknown]
  - Hepatosplenomegaly [Unknown]
